FAERS Safety Report 13594370 (Version 1)
Quarter: 2017Q2

REPORT INFORMATION
  Report Type: Spontaneous
  Country: US (occurrence: US)
  Receive Date: 20170530
  Receipt Date: 20170530
  Transmission Date: 20170830
  Serious: Yes (Hospitalization, Other)
  Sender: FDA-Public Use
  Company Number: US-ZYDUS-015267

PATIENT
  Age: 38 Year
  Sex: Male

DRUGS (1)
  1. CLONIDINE. [Suspect]
     Active Substance: CLONIDINE
     Indication: PRODUCT USED FOR UNKNOWN INDICATION
     Route: 065

REACTIONS (11)
  - Respiratory depression [Unknown]
  - Intentional overdose [Unknown]
  - Lethargy [Unknown]
  - Mental status changes [Recovering/Resolving]
  - Metabolic acidosis [Unknown]
  - Electrocardiogram repolarisation abnormality [Unknown]
  - Blood lactic acid increased [Recovered/Resolved]
  - Toxicity to various agents [Unknown]
  - Hypotension [Recovered/Resolved]
  - Miosis [Unknown]
  - Sinus bradycardia [Recovered/Resolved]
